FAERS Safety Report 9785735 (Version 2)
Quarter: 2014Q1

REPORT INFORMATION
  Report Type: Spontaneous
  Country: PL (occurrence: None)
  Receive Date: 20131224
  Receipt Date: 20140103
  Transmission Date: 20141002
  Serious: Yes (Hospitalization)
  Sender: FDA-Public Use
  Company Number: AUR-APL-2013-10609

PATIENT
  Age: 35 Year
  Sex: Female

DRUGS (3)
  1. LEVETIRACETAM [Suspect]
     Indication: EPILEPSY
     Dosage: UNKNOWN
  2. VALPROIC ACID [Suspect]
     Indication: EPILEPSY
     Dosage: UNKNOWN
  3. TOPIRAMATE [Suspect]
     Indication: EPILEPSY
     Dosage: (400 MG, 1 D), UNKNOWN

REACTIONS (5)
  - Loss of consciousness [None]
  - Convulsion [None]
  - Aggression [None]
  - Mental disorder [None]
  - Condition aggravated [None]
